FAERS Safety Report 9427226 (Version 1)
Quarter: 2013Q3

REPORT INFORMATION
  Report Type: Spontaneous
  Country: US (occurrence: US)
  Receive Date: 20130730
  Receipt Date: 20130730
  Transmission Date: 20140515
  Serious: No
  Sender: FDA-Public Use
  Company Number: US-ABBOTT-12P-163-0967307-00

PATIENT
  Sex: Female
  Weight: 44.49 kg

DRUGS (5)
  1. NIASPAN (COATED) 500MG [Suspect]
     Indication: BLOOD CHOLESTEROL INCREASED
     Dates: start: 20120809, end: 20120810
  2. CRESTOR [Concomitant]
     Indication: PRODUCT USED FOR UNKNOWN INDICATION
  3. PREMARIN [Concomitant]
     Indication: PRODUCT USED FOR UNKNOWN INDICATION
  4. MVI [Concomitant]
     Indication: PRODUCT USED FOR UNKNOWN INDICATION
  5. COQ-10 [Concomitant]
     Indication: PRODUCT USED FOR UNKNOWN INDICATION

REACTIONS (3)
  - Choking sensation [Recovering/Resolving]
  - Chest pain [Recovering/Resolving]
  - Swollen tongue [Recovering/Resolving]
